FAERS Safety Report 7274693-8 (Version None)
Quarter: 2011Q1

REPORT INFORMATION
  Report Type: 
  Country: None (occurrence: None)
  Receive Date: 20110127
  Receipt Date: 20110118
  Transmission Date: 20110831
  Serious: Yes (Hospitalization)
  Sender: FDA-Public Use
  Company Number: 809893

PATIENT
  Age: 76 Year
  Sex: Female

DRUGS (3)
  1. OXALIPLATIN [Suspect]
     Indication: PRODUCT USED FOR UNKNOWN INDICATION
     Dosage: 85 MG MILLIGRAM(S), INTRAVENOUS, 125 MG MILLIGRAM(S), INTRAVENOUS
     Route: 042
     Dates: start: 20090427
  2. OXALIPLATIN [Suspect]
     Indication: PRODUCT USED FOR UNKNOWN INDICATION
     Dosage: 85 MG MILLIGRAM(S), INTRAVENOUS, 125 MG MILLIGRAM(S), INTRAVENOUS
     Route: 042
     Dates: start: 20100415
  3. GEMCITABINE [Concomitant]

REACTIONS (3)
  - PARAESTHESIA [None]
  - NEOPLASM PROGRESSION [None]
  - SHOCK [None]
